FAERS Safety Report 24703130 (Version 1)
Quarter: 2024Q4

REPORT INFORMATION
  Report Type: Spontaneous
  Country: US (occurrence: US)
  Receive Date: 20241205
  Receipt Date: 20241205
  Transmission Date: 20250115
  Serious: Yes (Other)
  Sender: PFIZER
  Company Number: US-PFIZER INC-PV202400158660

PATIENT
  Age: 64 Year
  Sex: Female

DRUGS (2)
  1. XELJANZ XR [Suspect]
     Active Substance: TOFACITINIB CITRATE
     Indication: Rheumatoid arthritis
     Dosage: 11 MG, 1X/DAY
     Route: 048
     Dates: end: 202411
  2. ACTEMRA ACTPEN [Concomitant]
     Active Substance: TOCILIZUMAB
     Dosage: UNK

REACTIONS (5)
  - Nephrolithiasis [Unknown]
  - Drug ineffective [Unknown]
  - Herpes zoster [Unknown]
  - Viral infection [Unknown]
  - Bacterial infection [Unknown]

NARRATIVE: CASE EVENT DATE: 20231201
